FAERS Safety Report 7402576-9 (Version None)
Quarter: 2011Q2

REPORT INFORMATION
  Report Type: 
  Country: None (occurrence: None)
  Receive Date: 20110408
  Receipt Date: 20110401
  Transmission Date: 20111010
  Serious: Yes (Death, Hospitalization)
  Sender: FDA-Public Use
  Company Number: IE-MEDIMMUNE-MEDI-0012257

PATIENT
  Sex: Female
  Weight: 6.06 kg

DRUGS (4)
  1. RANITIDINE HCL [Concomitant]
  2. GAVISCON [Concomitant]
  3. SYNAGIS [Suspect]
     Route: 030
     Dates: start: 20101104, end: 20110114
  4. HYOSCINE [Concomitant]

REACTIONS (2)
  - LOWER RESPIRATORY TRACT INFECTION [None]
  - RESPIRATORY FAILURE [None]
